FAERS Safety Report 6102893-9 (Version None)
Quarter: 2009Q1

REPORT INFORMATION
  Report Type: 
  Country: None (occurrence: None)
  Receive Date: 20090303
  Receipt Date: 20090303
  Transmission Date: 20090719
  Serious: No
  Sender: FDA-Public Use
  Company Number: None

PATIENT
  Age: 31 Year
  Sex: Male
  Weight: 72.5755 kg

DRUGS (2)
  1. NEOMYCIN [Suspect]
     Indication: GASTROINTESTINAL DISORDER
     Dosage: 500MG -QTY 40 4 TIMES / DAY PO
     Route: 048
     Dates: start: 20090217, end: 20090227
  2. NEOMYCIN [Suspect]
     Indication: OVERGROWTH BACTERIAL
     Dosage: 500MG -QTY 40 4 TIMES / DAY PO
     Route: 048
     Dates: start: 20090217, end: 20090227

REACTIONS (3)
  - EAR PAIN [None]
  - HEARING IMPAIRED [None]
  - TINNITUS [None]
